FAERS Safety Report 10757990 (Version 1)
Quarter: 2015Q1

REPORT INFORMATION
  Report Type: Spontaneous
  Country: US (occurrence: US)
  Receive Date: 20150203
  Receipt Date: 20150203
  Transmission Date: 20150721
  Serious: No
  Sender: FDA-Public Use
  Company Number: US-TEVA-454142USA

PATIENT
  Sex: Female

DRUGS (2)
  1. MIRTAZAPINE. [Suspect]
     Active Substance: MIRTAZAPINE
     Indication: INSOMNIA
  2. MIRTAZAPINE. [Suspect]
     Active Substance: MIRTAZAPINE
     Indication: DEPRESSION
     Dosage: 1 DOSAGE FORMS DAILY; AT BEDTIME; TAKES HALF THE DOSE NORMALLY AND ADJUSTS TO THE 15 MG WHEN NEEDED

REACTIONS (6)
  - Rash [Unknown]
  - Rhinorrhoea [Unknown]
  - Malaise [Unknown]
  - Candida infection [Unknown]
  - Eye discharge [Unknown]
  - Eye swelling [Unknown]
